FAERS Safety Report 5861015-X (Version None)
Quarter: 2008Q3

REPORT INFORMATION
  Report Type: 
  Country: None (occurrence: None)
  Receive Date: 20080827
  Receipt Date: 20080122
  Transmission Date: 20090109
  Serious: No
  Sender: FDA-Public Use
  Company Number: US-ABBOTT-08P-163-0434675-00

PATIENT
  Sex: Male
  Weight: 79.45 kg

DRUGS (1)
  1. COATED PDS [Suspect]
     Indication: HYPERLIPIDAEMIA
     Route: 048
     Dates: start: 20070501

REACTIONS (1)
  - URTICARIA [None]
